FAERS Safety Report 9748974 (Version 1)
Quarter: 2013Q4

REPORT INFORMATION
  Report Type: Spontaneous
  Country: US (occurrence: US)
  Receive Date: 20131212
  Receipt Date: 20131212
  Transmission Date: 20140711
  Serious: No
  Sender: FDA-Public Use
  Company Number: US-TEVA-392342USA

PATIENT
  Age: 29 Year
  Sex: Female
  Weight: 53.57 kg

DRUGS (2)
  1. PARAGARD 380A [Suspect]
     Indication: CONTRACEPTION
     Route: 015
     Dates: start: 20130129, end: 20130314
  2. VINBLASTINE [Concomitant]
     Dates: start: 201206

REACTIONS (3)
  - Menorrhagia [Recovered/Resolved]
  - Menometrorrhagia [Unknown]
  - Device expulsion [Recovered/Resolved]
